FAERS Safety Report 12345508 (Version 2)
Quarter: 2016Q2

REPORT INFORMATION
  Report Type: Spontaneous
  Country: FR (occurrence: FR)
  Receive Date: 20160509
  Receipt Date: 20160511
  Transmission Date: 20160815
  Serious: Yes (Life-Threatening, Hospitalization)
  Sender: FDA-Public Use
  Company Number: FR-ABBVIE-16K-056-1620788-00

PATIENT
  Age: 36 Year
  Sex: Male
  Weight: 90 kg

DRUGS (2)
  1. HUMIRA [Suspect]
     Active Substance: ADALIMUMAB
     Indication: CROHN^S DISEASE
     Route: 058
     Dates: start: 201507, end: 201602
  2. IMUREL [Suspect]
     Active Substance: AZATHIOPRINE SODIUM
     Indication: PRODUCT USED FOR UNKNOWN INDICATION
     Route: 048
     Dates: start: 201507, end: 201602

REACTIONS (7)
  - Jaundice cholestatic [Unknown]
  - Shock haemorrhagic [Unknown]
  - Histoplasmosis disseminated [Not Recovered/Not Resolved]
  - Duodenal ulcer [Unknown]
  - Histiocytosis haematophagic [Not Recovered/Not Resolved]
  - Chills [Unknown]
  - Arthralgia [Unknown]

NARRATIVE: CASE EVENT DATE: 20160225
